FAERS Safety Report 23493494 (Version 1)
Quarter: 2024Q1

REPORT INFORMATION
  Report Type: Spontaneous
  Country: GB (occurrence: GB)
  Receive Date: 20240207
  Receipt Date: 20240207
  Transmission Date: 20240410
  Serious: Yes (Hospitalization, Other)
  Sender: FDA-Public Use
  Company Number: None

PATIENT
  Age: 25 Year
  Sex: Female
  Weight: 60 kg

DRUGS (1)
  1. MIRENA [Suspect]
     Active Substance: LEVONORGESTREL
     Indication: Endometritis
     Dosage: 20?G/DAY
     Route: 015
     Dates: start: 20221114, end: 20231013

REACTIONS (11)
  - Depression [Not Recovered/Not Resolved]
  - Anxiety [Not Recovered/Not Resolved]
  - Migraine [Not Recovered/Not Resolved]
  - Ovarian cyst [None]
  - Weight increased [None]
  - Alopecia [None]
  - Libido decreased [None]
  - Bone pain [None]
  - Off label use [None]
  - Device use issue [None]
  - Arthralgia [None]

NARRATIVE: CASE EVENT DATE: 20231011
